FAERS Safety Report 23575579 (Version 1)
Quarter: 2024Q1

REPORT INFORMATION
  Report Type: Spontaneous
  Country: IT (occurrence: IT)
  Receive Date: 20240228
  Receipt Date: 20240228
  Transmission Date: 20240410
  Serious: Yes (Other)
  Sender: FDA-Public Use
  Company Number: IT-MYLANLABS-2018M1070746

PATIENT
  Age: 40 Year
  Sex: Female
  Weight: 70 kg

DRUGS (29)
  1. CETRORELIX ACETATE [Suspect]
     Active Substance: CETRORELIX ACETATE
     Indication: Hypothalamo-pituitary disorder
     Dosage: 0.25 MILLIGRAM
     Route: 065
  2. CETRORELIX ACETATE [Suspect]
     Active Substance: CETRORELIX ACETATE
     Indication: In vitro fertilisation
  3. CHORIOGONADOTROPIN ALFA [Suspect]
     Active Substance: CHORIOGONADOTROPIN ALFA
     Indication: Controlled ovarian stimulation
     Dosage: 0.08 MG
     Route: 065
  4. ETHINYL ESTRADIOL\GESTODENE [Suspect]
     Active Substance: ETHINYL ESTRADIOL\GESTODENE
     Indication: Hormone therapy
     Dosage: 0.03 MG, (SCHEDULED TO BE ADMINISTERED FOR 28 DAYS; RECEIVED DURING IN VITRO FERTILIZATION) (0.03 MG
     Route: 065
  5. ETHINYL ESTRADIOL\GESTODENE [Suspect]
     Active Substance: ETHINYL ESTRADIOL\GESTODENE
     Indication: In vitro fertilisation
  6. CORIFOLLITROPIN ALFA [Suspect]
     Active Substance: CORIFOLLITROPIN ALFA
     Indication: Controlled ovarian stimulation
     Dosage: UNK
     Route: 065
  7. ENANTONE LP [Suspect]
     Active Substance: LEUPROLIDE ACETATE
     Dosage: UNK
     Route: 065
  8. ENANTONE LP [Suspect]
     Active Substance: LEUPROLIDE ACETATE
     Indication: Controlled ovarian stimulation
     Dosage: UNK
     Route: 065
  9. ESTRADIOL [Suspect]
     Active Substance: ESTRADIOL
     Indication: Assisted reproductive technology
     Dosage: 4 MILLIGRAM, DURATION 10 DAYS; (1 D)
     Route: 065
  10. ESTRADIOL [Suspect]
     Active Substance: ESTRADIOL
     Indication: Hormone therapy
     Dosage: UNK
     Route: 065
  11. ETHINYL ESTRADIOL [Suspect]
     Active Substance: ETHINYL ESTRADIOL
     Indication: In vitro fertilisation
     Dosage: UNK
     Route: 065
  12. ETHINYL ESTRADIOL [Suspect]
     Active Substance: ETHINYL ESTRADIOL
     Indication: Hormone therapy
     Dosage: 0.075 MG, (SCHEDULED TO BE ADMINISTERED FOR 28 DAYS; RECEIVED DURING IN VITRO FERTILIZATION)
     Route: 065
  13. FOLLITROPIN ALFA [Suspect]
     Active Substance: FOLLITROPIN ALFA
     Indication: Controlled ovarian stimulation
     Route: 065
  14. FOLLITROPIN BETA [Suspect]
     Active Substance: FOLLITROPIN BETA
     Indication: In vitro fertilisation
     Dosage: UNK, QD
     Route: 065
  15. FOLLITROPIN BETA [Suspect]
     Active Substance: FOLLITROPIN BETA
     Indication: Controlled ovarian stimulation
     Dosage: 300 INTERNATIONAL UNIT, QD
     Route: 065
  16. FOLLITROPIN BETA [Suspect]
     Active Substance: FOLLITROPIN BETA
     Dosage: UNK
     Route: 065
  17. GESTODENE [Suspect]
     Active Substance: GESTODENE
     Indication: In vitro fertilisation
     Dosage: 0.03 MG
     Route: 065
  18. GESTODENE [Suspect]
     Active Substance: GESTODENE
     Indication: Hormone therapy
  19. LEVETIRACETAM [Suspect]
     Active Substance: LEVETIRACETAM
     Indication: Generalised tonic-clonic seizure
     Dosage: 1000 MG, TID
     Route: 048
  20. MENOTROPINS [Suspect]
     Active Substance: MENOTROPINS
     Dosage: UNK
     Route: 065
  21. MENOTROPINS [Suspect]
     Active Substance: MENOTROPINS
     Indication: Controlled ovarian stimulation
     Dosage: UNK
     Route: 065
  22. FOLLITROPIN BETA [Suspect]
     Active Substance: FOLLITROPIN BETA
     Indication: Hypothalamo-pituitary disorder
     Dosage: UNK
     Route: 065
  23. FOLLITROPIN BETA [Suspect]
     Active Substance: FOLLITROPIN BETA
     Indication: In vitro fertilisation
     Dosage: UNK, QD
     Route: 030
     Dates: start: 20120517, end: 20120524
  24. FOLLITROPIN BETA [Suspect]
     Active Substance: FOLLITROPIN BETA
     Indication: Controlled ovarian stimulation
     Dosage: UNK
     Route: 065
  25. FOLLITROPIN BETA [Suspect]
     Active Substance: FOLLITROPIN BETA
     Indication: Hormone therapy
  26. CLOBAZAM [Concomitant]
     Active Substance: CLOBAZAM
     Dosage: 20 MG, QD
     Route: 065
  27. CLOBAZAM [Concomitant]
     Active Substance: CLOBAZAM
     Indication: Epilepsy
     Dosage: 30 MILLIGRAM
     Route: 065
  28. KEPPRA [Concomitant]
     Active Substance: LEVETIRACETAM
     Dosage: 1000 MG
     Route: 048
     Dates: start: 20110418
  29. KEPPRA [Concomitant]
     Active Substance: LEVETIRACETAM
     Indication: Epilepsy
     Dosage: 1000 MG, TID (3 IN 1 D)
     Route: 048
     Dates: start: 20110418

REACTIONS (9)
  - Condition aggravated [Recovered/Resolved]
  - Generalised tonic-clonic seizure [Recovered/Resolved]
  - Generalised tonic-clonic seizure [Recovered/Resolved]
  - Blood oestrogen increased [Unknown]
  - Drug ineffective [Unknown]
  - Drug level decreased [Unknown]
  - Drug interaction [Unknown]
  - Off label use [Unknown]
  - Product use in unapproved indication [Unknown]

NARRATIVE: CASE EVENT DATE: 20120415
